FAERS Safety Report 13616391 (Version 2)
Quarter: 2017Q2

REPORT INFORMATION
  Report Type: Spontaneous
  Country: US (occurrence: US)
  Receive Date: 20170606
  Receipt Date: 20170621
  Transmission Date: 20170830
  Serious: No
  Sender: FDA-Public Use
  Company Number: US-BAYER-2017-107610

PATIENT
  Sex: Female

DRUGS (2)
  1. INSULIN [Concomitant]
     Active Substance: INSULIN NOS
     Indication: TYPE 1 DIABETES MELLITUS
     Dosage: UNK
  2. CLIMARA PRO [Suspect]
     Active Substance: ESTRADIOL\LEVONORGESTREL
     Indication: HYPERHIDROSIS
     Dosage: UNK
     Route: 062

REACTIONS (5)
  - Product quality issue [None]
  - Product physical issue [None]
  - Pre-existing condition improved [Unknown]
  - Product adhesion issue [Recovered/Resolved]
  - Incorrect dosage administered [Unknown]
